FAERS Safety Report 8960865 (Version 1)
Quarter: 2012Q4

REPORT INFORMATION
  Report Type: Spontaneous
  Country: US (occurrence: None)
  Receive Date: 20121211
  Receipt Date: 20121211
  Transmission Date: 20130627
  Serious: No
  Sender: FDA-Public Use
  Company Number: None

PATIENT
  Age: 25 Year
  Sex: Female

DRUGS (1)
  1. MIRENA IUD [Suspect]

REACTIONS (2)
  - Cerebrovascular accident [None]
  - Deep vein thrombosis [None]
